FAERS Safety Report 7633302-6 (Version None)
Quarter: 2011Q3

REPORT INFORMATION
  Report Type: 
  Country: None (occurrence: None)
  Receive Date: 20110725
  Receipt Date: 20110713
  Transmission Date: 20111222
  Serious: Yes (Other)
  Sender: FDA-Public Use
  Company Number: US-UCBSA-037175

PATIENT
  Age: 45 Year
  Sex: Female
  Weight: 101.6 kg

DRUGS (12)
  1. PRISTIQ [Concomitant]
     Indication: DEPRESSION
     Route: 048
  2. SYMBICORT [Concomitant]
     Indication: BRONCHITIS CHRONIC
  3. SPIRIVA [Concomitant]
     Indication: BRONCHITIS CHRONIC
     Dates: end: 20110101
  4. TRILEPTAL [Concomitant]
     Indication: EPILEPSY
     Route: 048
  5. LYRICA [Suspect]
     Indication: NEUROPATHY PERIPHERAL
     Route: 048
     Dates: start: 20100101
  6. FERROUS SULFATE TAB [Concomitant]
     Indication: ANAEMIA
     Dosage: OCCASIONALLY
  7. LUNESTA [Concomitant]
     Indication: SOMNOLENCE
     Dosage: AT BEDTIME
     Route: 048
  8. XANAX [Concomitant]
     Indication: ANXIETY
  9. KEPPRA [Suspect]
     Indication: CONVULSION
     Route: 048
  10. PROZAC [Concomitant]
     Indication: DEPRESSION
     Dates: end: 20110101
  11. VITAMIN B-12 [Concomitant]
     Indication: ANAEMIA
  12. UNSPECIFIED CERVICAL INJECTION [Concomitant]
     Route: 019
     Dates: start: 20100201

REACTIONS (7)
  - DRUG HYPERSENSITIVITY [None]
  - FEELING ABNORMAL [None]
  - DIABETES MELLITUS [None]
  - THINKING ABNORMAL [None]
  - FIBROMYALGIA [None]
  - SPEECH DISORDER [None]
  - ABASIA [None]
